FAERS Safety Report 25832889 (Version 1)
Quarter: 2025Q3

REPORT INFORMATION
  Report Type: Spontaneous
  Country: US (occurrence: US)
  Receive Date: 20250922
  Receipt Date: 20250922
  Transmission Date: 20251021
  Serious: Yes (Other)
  Sender: GLENMARK
  Company Number: US-MLMSERVICE-20250904-PI631661-00091-1

PATIENT
  Age: 76 Year
  Sex: Female

DRUGS (2)
  1. OMEPRAZOLE [Suspect]
     Active Substance: OMEPRAZOLE
     Indication: Product used for unknown indication
     Dosage: UNK UNK, BID (EVERY 12 HOURS)
     Route: 065
  2. CELECOXIB [Suspect]
     Active Substance: CELECOXIB
     Indication: Migraine
     Route: 065

REACTIONS (1)
  - Duodenal stenosis [Recovered/Resolved]
